FAERS Safety Report 9421959 (Version 4)
Quarter: 2013Q4

REPORT INFORMATION
  Report Type: Spontaneous
  Country: JP (occurrence: JP)
  Receive Date: 20130726
  Receipt Date: 20131113
  Transmission Date: 20140711
  Serious: Yes (Life-Threatening, Hospitalization, Disabling, Other)
  Sender: FDA-Public Use
  Company Number: JP-JNJFOC-20130713499

PATIENT
  Age: 63 Year
  Sex: Male
  Weight: 55 kg

DRUGS (14)
  1. REMICADE [Suspect]
     Indication: CROHN^S DISEASE
     Dosage: FIRST DOSE (300 MG)
     Route: 042
     Dates: start: 20130123
  2. REMICADE [Suspect]
     Indication: CROHN^S DISEASE
     Route: 042
     Dates: start: 20130430
  3. REMICADE [Suspect]
     Indication: CROHN^S DISEASE
     Dosage: FIFTH DOSE (500 MG)
     Route: 042
     Dates: start: 20130625
  4. IMURAN [Suspect]
     Indication: CROHN^S DISEASE
     Route: 048
     Dates: start: 20130305, end: 20130701
  5. PREDONINE [Suspect]
     Indication: CROHN^S DISEASE
     Route: 065
     Dates: start: 20130604, end: 20130707
  6. PREDONINE [Suspect]
     Indication: CROHN^S DISEASE
     Route: 065
     Dates: start: 20130530
  7. ELENTAL [Concomitant]
     Route: 048
  8. URSO [Concomitant]
     Indication: LIVER DISORDER
     Route: 048
  9. INTRALIPOS [Concomitant]
     Indication: CROHN^S DISEASE
     Route: 048
     Dates: start: 20130621, end: 20130701
  10. ELNEOPA NO 2 [Concomitant]
     Indication: CROHN^S DISEASE
     Route: 065
     Dates: start: 20130618, end: 20130701
  11. ACINON [Concomitant]
     Indication: CROHN^S DISEASE
     Route: 048
     Dates: start: 20130416
  12. MIYA BM [Concomitant]
     Indication: CROHN^S DISEASE
     Route: 048
     Dates: start: 20130118
  13. PENTASA [Concomitant]
     Indication: CROHN^S DISEASE
     Route: 048
     Dates: start: 20130117
  14. PENTASA [Concomitant]
     Indication: CROHN^S DISEASE
     Route: 048
     Dates: start: 20130123

REACTIONS (3)
  - Candida sepsis [Not Recovered/Not Resolved]
  - Candida endophthalmitis [Recovering/Resolving]
  - Ileal ulcer [Unknown]
